FAERS Safety Report 6409491-8 (Version None)
Quarter: 2009Q4

REPORT INFORMATION
  Report Type: 
  Country: None (occurrence: None)
  Receive Date: 20091019
  Receipt Date: 20091014
  Transmission Date: 20100525
  Serious: Yes (Death)
  Sender: FDA-Public Use
  Company Number: SAL/IMIQUIMOD-08

PATIENT
  Sex: Male

DRUGS (2)
  1. IMIQUIMOD [Suspect]
     Indication: ACTINIC KERATOSIS
     Dosage: 1  APPL TWICE A WEEK,060
  2. ALDARA [Suspect]
     Indication: ACTINIC KERATOSIS
     Dosage: 1 APPL TWICE A WEEK,060

REACTIONS (1)
  - PROCEDURAL COMPLICATION [None]
